FAERS Safety Report 19632886 (Version 5)
Quarter: 2022Q3

REPORT INFORMATION
  Report Type: Report from Study
  Country: US (occurrence: US)
  Receive Date: 20210730
  Receipt Date: 20220630
  Transmission Date: 20221027
  Serious: No
  Sender: FDA-Public Use
  Company Number: NVSC2021US156811

PATIENT
  Age: 27 Year
  Sex: Female

DRUGS (5)
  1. KESIMPTA [Suspect]
     Active Substance: OFATUMUMAB
     Indication: Peripheral swelling
     Dosage: 2 (PEN)
     Route: 065
  2. KESIMPTA [Suspect]
     Active Substance: OFATUMUMAB
     Indication: Multiple sclerosis
     Dosage: 0.4 ML, QW
     Route: 058
  3. KESIMPTA [Suspect]
     Active Substance: OFATUMUMAB
     Dosage: 20 MG
     Route: 058
  4. KESIMPTA [Suspect]
     Active Substance: OFATUMUMAB
     Dosage: UNK
     Route: 065
     Dates: start: 20210622
  5. VITAMIN D [Concomitant]
     Active Substance: VITAMIN D NOS
     Indication: Product used for unknown indication
     Dosage: UNK UNK, Q96H
     Route: 065

REACTIONS (10)
  - Malaise [Unknown]
  - Feeling cold [Unknown]
  - Vomiting [Unknown]
  - Joint swelling [Unknown]
  - Peripheral swelling [Unknown]
  - Device defective [Unknown]
  - Device malfunction [Unknown]
  - Product use in unapproved indication [Unknown]
  - Skin striae [Unknown]
  - Weight increased [Unknown]

NARRATIVE: CASE EVENT DATE: 20210715
